FAERS Safety Report 7080124-3 (Version None)
Quarter: 2010Q4

REPORT INFORMATION
  Report Type: 
  Country: None (occurrence: None)
  Receive Date: 20101102
  Receipt Date: 20101019
  Transmission Date: 20110411
  Serious: Yes (Death, Hospitalization, Other)
  Sender: FDA-Public Use
  Company Number: US-AMGEN-USASP2010000517

PATIENT

DRUGS (3)
  1. NPLATE [Suspect]
     Indication: IDIOPATHIC THROMBOCYTOPENIC PURPURA
     Dates: start: 20100518, end: 20100625
  2. CORTICOSTEROIDS [Concomitant]
     Dosage: UNK
     Dates: start: 20100311
  3. IMMUNE GLOBULIN NOS [Concomitant]
     Dosage: UNK
     Dates: start: 20090501

REACTIONS (9)
  - CEREBROVASCULAR ACCIDENT [None]
  - DRUG INEFFECTIVE [None]
  - NO THERAPEUTIC RESPONSE [None]
  - PNEUMONIA [None]
  - PYREXIA [None]
  - RESPIRATORY FAILURE [None]
  - SEPSIS [None]
  - THROMBOSIS [None]
  - UNRESPONSIVE TO STIMULI [None]
